FAERS Safety Report 5605286-3 (Version None)
Quarter: 2008Q1

REPORT INFORMATION
  Report Type: 
  Country: None (occurrence: None)
  Receive Date: 20080123
  Receipt Date: 20080123
  Transmission Date: 20080703
  Serious: No
  Sender: FDA-Public Use
  Company Number: None

PATIENT
  Sex: Male

DRUGS (1)
  1. TOPROL  360 MG [Suspect]
     Indication: HYPERTENSION
     Dosage: 1 QD  (DURATION: PAST 6-9 MONTHS)

REACTIONS (5)
  - ASTHENIA [None]
  - BALANCE DISORDER [None]
  - FATIGUE [None]
  - GAIT DISTURBANCE [None]
  - PARAESTHESIA [None]
